FAERS Safety Report 4668301-X (Version None)
Quarter: 2005Q2

REPORT INFORMATION
  Report Type: 
  Country: None (occurrence: None)
  Receive Date: 20050523
  Receipt Date: 20050303
  Transmission Date: 20051028
  Serious: Yes (Death, Hospitalization, Other)
  Sender: FDA-Public Use
  Company Number: PHEH2005US02771

PATIENT
  Age: 50 Year
  Sex: Female

DRUGS (5)
  1. ZOMETA [Suspect]
     Indication: METASTASES TO BONE
     Dosage: 4 MG, QMO
     Route: 042
     Dates: start: 20020101, end: 20050101
  2. TAMOXIFEN [Concomitant]
     Indication: BREAST CANCER
     Dates: start: 20040601, end: 20040901
  3. MEGACE [Concomitant]
     Indication: BREAST CANCER
     Dosage: 200 MG, BID
     Dates: start: 20040301, end: 20040601
  4. TAXOTERE [Concomitant]
     Dosage: 30MG
     Dates: start: 20030601, end: 20040101
  5. GEMZAR [Concomitant]
     Dosage: 1250MG
     Dates: start: 20021101, end: 20040501

REACTIONS (10)
  - MALIGNANT NEOPLASM PROGRESSION [None]
  - OEDEMA [None]
  - OPEN REDUCTION OF FRACTURE [None]
  - ORAL SOFT TISSUE DISORDER [None]
  - OSTEOMYELITIS [None]
  - OSTEONECROSIS [None]
  - PAIN [None]
  - PATHOLOGICAL FRACTURE [None]
  - TOOTH EXTRACTION [None]
  - WOUND DEBRIDEMENT [None]
